FAERS Safety Report 11196520 (Version 2)
Quarter: 2015Q2

REPORT INFORMATION
  Report Type: Report from Study
  Country: AU (occurrence: None)
  Receive Date: 20150615
  Receipt Date: 20150622
  Transmission Date: 20150821
  Serious: Yes (Other)
  Sender: FDA-Public Use
  Company Number: 2015-10597

PATIENT
  Age: 60 Year
  Sex: Female

DRUGS (1)
  1. EYLEA [Suspect]
     Active Substance: AFLIBERCEPT
     Indication: NEOVASCULAR AGE-RELATED MACULAR DEGENERATION
     Dosage: 2 MG, RIGHT EYE INJECTIONS IN 8 WEEK INTERVAL
     Route: 031
     Dates: start: 20140712, end: 201501

REACTIONS (9)
  - Off label use [None]
  - Age-related macular degeneration [None]
  - Systemic lupus erythematosus [None]
  - Arthralgia [None]
  - Incorrect drug administration rate [None]
  - Eye haemorrhage [None]
  - Localised infection [None]
  - Peripheral swelling [None]
  - Allergy to chemicals [None]
